FAERS Safety Report 25162607 (Version 3)
Quarter: 2025Q2

REPORT INFORMATION
  Report Type: Spontaneous
  Country: US (occurrence: US)
  Receive Date: 20250404
  Receipt Date: 20250616
  Transmission Date: 20250716
  Serious: Yes (Disabling, Other)
  Sender: PFIZER
  Company Number: US-PFIZER INC-PV202500040514

PATIENT
  Sex: Female

DRUGS (1)
  1. DEPO-PROVERA [Suspect]
     Active Substance: MEDROXYPROGESTERONE ACETATE
     Indication: Contraception
     Dosage: 150 MG, EVERY 3 MONTHS
     Route: 030
     Dates: start: 2002, end: 20241010

REACTIONS (5)
  - Deafness unilateral [Not Recovered/Not Resolved]
  - Intracranial aneurysm [Unknown]
  - Ear neoplasm [Unknown]
  - Neoplasm [Unknown]
  - Meningioma [Unknown]

NARRATIVE: CASE EVENT DATE: 20060101
